FAERS Safety Report 4480165-6 (Version None)
Quarter: 2004Q4

REPORT INFORMATION
  Report Type: 
  Country: None (occurrence: None)
  Receive Date: 20041018
  Receipt Date: 20040930
  Transmission Date: 20050328
  Serious: Yes (Hospitalization)
  Sender: FDA-Public Use
  Company Number: DSA_25116_2004

PATIENT
  Age: 75 Year
  Sex: Female

DRUGS (10)
  1. ENALAPRIL MALEATE [Suspect]
     Indication: HYPERTENSION
     Dosage: 20 MG QD PO
     Route: 048
  2. ALDACTONE [Suspect]
     Indication: ASCITES
     Dosage: 25 MG QD PO
     Route: 048
     Dates: start: 20031201, end: 20040311
  3. BELOC ZOK [Suspect]
     Indication: HYPERTENSION
     Dosage: 95 MG QD PO
     Route: 047
     Dates: end: 20040321
  4. DIGITOXIN TAB [Suspect]
     Indication: CARDIAC FAILURE CONGESTIVE
     Dosage: 0.07 MG QD PO
     Route: 048
     Dates: start: 19950101, end: 20040311
  5. DIGITOXIN TAB [Suspect]
     Indication: CARDIAC FAILURE CONGESTIVE
     Dosage: 0.07 MG QD PO
     Route: 048
     Dates: start: 20040320
  6. NORVASC [Concomitant]
  7. FURORESE [Concomitant]
  8. INSULIN HUMAN [Concomitant]
  9. INSULIN, BIPHASIC ISOPHANE [Concomitant]
  10. FALITHROM [Concomitant]

REACTIONS (8)
  - ATRIAL FIBRILLATION [None]
  - BLOOD CREATININE INCREASED [None]
  - BLOOD SODIUM DECREASED [None]
  - BRADYCARDIA [None]
  - CARDIOACTIVE DRUG LEVEL INCREASED [None]
  - DRUG INTERACTION [None]
  - HYPERKALAEMIA [None]
  - VENTRICULAR EXTRASYSTOLES [None]
